FAERS Safety Report 8258292-7 (Version None)
Quarter: 2012Q2

REPORT INFORMATION
  Report Type: 
  Country: None (occurrence: None)
  Receive Date: 20120404
  Receipt Date: 20120323
  Transmission Date: 20120825
  Serious: Yes (Other)
  Sender: FDA-Public Use
  Company Number: US-SANOFI-AVENTIS-2012SA020353

PATIENT
  Age: 63 Year
  Sex: Female
  Weight: 64 kg

DRUGS (5)
  1. XANAX [Concomitant]
  2. PLAVIX [Suspect]
     Indication: VEIN DISORDER
     Route: 048
     Dates: start: 20110901
  3. PLAVIX [Suspect]
     Route: 048
     Dates: start: 20110901
  4. SYNTHROID [Concomitant]
  5. PLAVIX [Suspect]
     Indication: VASCULAR OCCLUSION
     Route: 048
     Dates: start: 20110901

REACTIONS (4)
  - ALOPECIA [None]
  - SCAR [None]
  - HAEMORRHAGE [None]
  - THROMBOSIS [None]
